FAERS Safety Report 5772135-2 (Version None)
Quarter: 2008Q2

REPORT INFORMATION
  Report Type: 
  Country: None (occurrence: None)
  Receive Date: 20080613
  Receipt Date: 20080606
  Transmission Date: 20081010
  Serious: Yes (Hospitalization)
  Sender: FDA-Public Use
  Company Number: JP-MERCK-0804USA05592

PATIENT
  Age: 87 Year
  Sex: Female

DRUGS (21)
  1. SINGULAIR [Suspect]
     Indication: ASTHMA
     Route: 048
     Dates: start: 20050801
  2. SINGULAIR [Suspect]
     Route: 048
     Dates: start: 20080212, end: 20080226
  3. SINGULAIR [Suspect]
     Route: 048
     Dates: start: 20050801
  4. HOKUNALIN [Concomitant]
     Route: 061
     Dates: start: 20080212
  5. TERSIGAN [Concomitant]
     Route: 048
     Dates: start: 20080212
  6. AMINOPHYLLINE [Suspect]
     Route: 042
     Dates: start: 20080212, end: 20080214
  7. LASIX [Concomitant]
     Route: 048
     Dates: start: 20080212, end: 20080229
  8. LASIX [Concomitant]
     Route: 048
     Dates: start: 20080301, end: 20080306
  9. AMINO ACIDS (UNSPECIFIED) AND CARBOHYDRATES (UNSPECIFIED) AND ELECTROL [Concomitant]
     Route: 042
     Dates: start: 20080208, end: 20080211
  10. AMINO ACIDS (UNSPECIFIED) AND CARBOHYDRATES (UNSPECIFIED) AND ELECTROL [Concomitant]
     Route: 042
     Dates: start: 20080223, end: 20080226
  11. FAMOTIDINE [Concomitant]
     Route: 051
     Dates: start: 20080208, end: 20080215
  12. LANSOPRAZOLE [Concomitant]
     Route: 048
     Dates: start: 20080216, end: 20080319
  13. SOLITA T-1 [Concomitant]
     Route: 042
     Dates: start: 20080216, end: 20080219
  14. SOLITA T-1 [Concomitant]
     Route: 042
     Dates: start: 20080220, end: 20080222
  15. AMINO ACIDS (UNSPECIFIED) [Concomitant]
     Route: 042
     Dates: start: 20080220, end: 20080222
  16. SOLITA [Concomitant]
     Route: 042
     Dates: start: 20080221, end: 20080222
  17. LIRANAFTATE [Concomitant]
     Route: 061
     Dates: start: 20080222
  18. MEROPEN [Concomitant]
     Route: 042
     Dates: start: 20080305, end: 20080314
  19. ALVESCO [Concomitant]
     Dates: start: 20080306, end: 20080327
  20. UREPEARL [Concomitant]
     Route: 061
     Dates: start: 20080307
  21. HUMULIN R [Concomitant]
     Route: 042

REACTIONS (2)
  - PLATELET COUNT DECREASED [None]
  - STATUS ASTHMATICUS [None]
